FAERS Safety Report 18663719 (Version 1)
Quarter: 2020Q4

REPORT INFORMATION
  Report Type: Other
  Country: US (occurrence: US)
  Receive Date: 20201225
  Receipt Date: 20201225
  Transmission Date: 20210114
  Serious: Yes (Other)
  Sender: FDA-Public Use
  Company Number: US-ROCHE-2737605

PATIENT
  Age: 27 Year
  Sex: Male

DRUGS (6)
  1. PLAVIX [Concomitant]
     Active Substance: CLOPIDOGREL BISULFATE
  2. INFLIXIMAB [Concomitant]
     Active Substance: INFLIXIMAB
  3. TOCILIZUMAB. [Suspect]
     Active Substance: TOCILIZUMAB
     Indication: TAKAYASU^S ARTERITIS
     Route: 042
  4. IBUPROFEN. [Concomitant]
     Active Substance: IBUPROFEN
  5. CILOSTAZOL. [Concomitant]
     Active Substance: CILOSTAZOL
  6. PREDNISONE. [Concomitant]
     Active Substance: PREDNISONE
     Indication: IRITIS

REACTIONS (3)
  - Large intestinal ulcer [Unknown]
  - Gastrointestinal ulcer [Unknown]
  - Haematochezia [Unknown]
